FAERS Safety Report 10049017 (Version 1)
Quarter: 2014Q1

REPORT INFORMATION
  Report Type: Spontaneous
  Country: DE (occurrence: DE)
  Receive Date: 20140331
  Receipt Date: 20140331
  Transmission Date: 20141002
  Serious: Yes (Hospitalization)
  Sender: FDA-Public Use
  Company Number: DE-ASTRAZENECA-2014SE20151

PATIENT
  Age: 49 Year
  Sex: Female

DRUGS (2)
  1. MEPIVACAINE [Suspect]
     Indication: BACK PAIN
  2. TRIAMCINOLONE [Suspect]
     Indication: BACK PAIN

REACTIONS (1)
  - Necrotising fasciitis [Recovered/Resolved]
